FAERS Safety Report 23709279 (Version 1)
Quarter: 2024Q2

REPORT INFORMATION
  Report Type: Spontaneous
  Country: US (occurrence: US)
  Receive Date: 20240404
  Receipt Date: 20240404
  Transmission Date: 20240716
  Serious: No
  Sender: FDA-Public Use
  Company Number: US-MYLANLABS-2024M1027790

PATIENT
  Sex: Female
  Weight: 68.36 kg

DRUGS (1)
  1. XANAX [Suspect]
     Active Substance: ALPRAZOLAM
     Indication: Anxiety
     Dosage: 0.5 MILLIGRAM, QD (EVERY DAY AT BEDTIME AS NEEDED)
     Route: 048

REACTIONS (1)
  - Off label use [Unknown]
